FAERS Safety Report 9553453 (Version 2)
Quarter: 2013Q4

REPORT INFORMATION
  Report Type: Spontaneous
  Country: IT (occurrence: IT)
  Receive Date: 20130925
  Receipt Date: 20131004
  Transmission Date: 20140711
  Serious: Yes (Hospitalization)
  Sender: FDA-Public Use
  Company Number: IT-ROCHE-1280442

PATIENT
  Age: 54 Year
  Sex: Female

DRUGS (8)
  1. ROCEFIN [Suspect]
     Indication: URINARY TRACT INFECTION
     Dosage: 1 G
     Route: 030
     Dates: start: 20130824, end: 20130828
  2. ROCEFIN [Suspect]
     Route: 030
     Dates: start: 20130829, end: 20130830
  3. ROCEFIN [Suspect]
     Route: 030
     Dates: start: 20130831, end: 20130901
  4. TACHIPIRINA [Suspect]
     Indication: PYREXIA
     Route: 048
     Dates: start: 20130821, end: 20130829
  5. RELPAX [Concomitant]
     Indication: MIGRAINE
     Route: 048
     Dates: start: 20130822, end: 20130822
  6. CIPROXIN (ITALY) [Concomitant]
     Indication: CYSTITIS
     Route: 048
     Dates: start: 20130818, end: 20130818
  7. TAVANIC [Concomitant]
     Indication: CYSTITIS
     Route: 048
     Dates: start: 20130819, end: 20130822
  8. EUTIROX [Concomitant]
     Route: 065

REACTIONS (1)
  - Hepatitis cholestatic [Recovering/Resolving]
